FAERS Safety Report 22000992 (Version 1)
Quarter: 2023Q1

REPORT INFORMATION
  Report Type: Spontaneous
  Country: US (occurrence: US)
  Receive Date: 20230216
  Receipt Date: 20230216
  Transmission Date: 20230417
  Serious: No
  Sender: FDA-Public Use
  Company Number: US-FERRINGPH-2022FE01530

PATIENT
  Sex: Male

DRUGS (1)
  1. NOCDURNA [Suspect]
     Active Substance: DESMOPRESSIN ACETATE
     Indication: Nocturia
     Route: 065

REACTIONS (1)
  - Circumstance or information capable of leading to medication error [Unknown]
